FAERS Safety Report 5021644-2 (Version None)
Quarter: 2006Q2

REPORT INFORMATION
  Report Type: 
  Country: None (occurrence: None)
  Receive Date: 20060601
  Receipt Date: 20060313
  Transmission Date: 20061013
  Serious: No
  Sender: FDA-Public Use
  Company Number: 2006PV010050

PATIENT
  Age: 62 Year
  Sex: Male
  Weight: 114.3065 kg

DRUGS (3)
  1. BYETTA [Suspect]
     Indication: DIABETES MELLITUS NON-INSULIN-DEPENDENT
     Dosage: 5 MCG;BID;SC
     Route: 058
     Dates: start: 20060307
  2. AMARYL [Concomitant]
  3. ACTOS [Concomitant]

REACTIONS (3)
  - IRRITABILITY [None]
  - NAUSEA [None]
  - STOMACH DISCOMFORT [None]
